FAERS Safety Report 26149087 (Version 1)
Quarter: 2025Q4

REPORT INFORMATION
  Report Type: Spontaneous
  Country: TH (occurrence: TH)
  Receive Date: 20251212
  Receipt Date: 20251212
  Transmission Date: 20260118
  Serious: Yes (Life-Threatening, Hospitalization)
  Sender: MACLEODS
  Company Number: TH-MLMSERVICE-20251124-PI725489-00295-1

PATIENT

DRUGS (4)
  1. QUETIAPINE [Suspect]
     Active Substance: QUETIAPINE
     Indication: Product used for unknown indication
     Dosage: SUBSTANTIAL QUANTITY OF QUETIAPINE (200MG)
     Route: 048
  2. ACETAMINOPHEN [Suspect]
     Active Substance: ACETAMINOPHEN
     Indication: Product used for unknown indication
     Dosage: SUBSTANTIAL QUANTITY OF PARACETAMOL
     Route: 048
  3. SERTRALINE [Suspect]
     Active Substance: SERTRALINE HYDROCHLORIDE
     Indication: Product used for unknown indication
     Dosage: SUBSTANTIAL QUANTITY OF SERTRALINE (50MG)
     Route: 048
  4. TRAZODONE [Suspect]
     Active Substance: TRAZODONE HYDROCHLORIDE
     Indication: Product used for unknown indication
     Dosage: SUBSTANTIAL QUANTITY OF TRAZODONE 50MG
     Route: 048

REACTIONS (4)
  - Serotonin syndrome [Recovered/Resolved]
  - Pneumonia aspiration [Unknown]
  - Coma [Unknown]
  - Intentional overdose [Unknown]
